FAERS Safety Report 19361023 (Version 1)
Quarter: 2021Q2

REPORT INFORMATION
  Report Type: Spontaneous
  Country: US (occurrence: US)
  Receive Date: 20210601
  Receipt Date: 20210601
  Transmission Date: 20210717
  Serious: No
  Sender: FDA-Public Use
  Company Number: US-SA-2021SA178073

PATIENT
  Sex: Male

DRUGS (3)
  1. COVID?19 VACCINE NOS. [Concomitant]
     Active Substance: COVID-19 VACCINE NOS
     Dosage: UNK UNK, TOTAL
     Dates: start: 2021
  2. DUPIXENT [Suspect]
     Active Substance: DUPILUMAB
     Dosage: 2 DF, 1X
     Route: 058
  3. DUPIXENT [Suspect]
     Active Substance: DUPILUMAB
     Dosage: 1 DF, QOW
     Route: 058

REACTIONS (1)
  - Wheezing [Unknown]
